FAERS Safety Report 8206582-6 (Version None)
Quarter: 2012Q1

REPORT INFORMATION
  Report Type: 
  Country: None (occurrence: None)
  Receive Date: 20120313
  Receipt Date: 20120308
  Transmission Date: 20120608
  Serious: Yes (Life-Threatening, Hospitalization)
  Sender: FDA-Public Use
  Company Number: AT-ASTRAZENECA-2012SE15958

PATIENT
  Age: 80 Year
  Sex: Male

DRUGS (12)
  1. BISOPROLOL FUMARATE [Concomitant]
  2. LASIX [Concomitant]
  3. LOVENOX [Concomitant]
  4. NEXIUM [Suspect]
     Route: 048
  5. SEROQUEL [Suspect]
     Route: 048
  6. CITALOPRAM HYDROBROMIDE [Concomitant]
  7. BURONIL [Concomitant]
  8. SEROQUEL [Suspect]
     Route: 048
  9. PLAVIX [Concomitant]
  10. ATORVASTATIN CALCIUM [Concomitant]
  11. TAMSULOSIN HCL [Concomitant]
  12. AVELOX [Concomitant]

REACTIONS (25)
  - HEART RATE INCREASED [None]
  - HYPOTENSION [None]
  - CHEST PAIN [None]
  - DYSPHAGIA [None]
  - OFF LABEL USE [None]
  - SOMNOLENCE [None]
  - MYOCARDIAL INFARCTION [None]
  - FATIGUE [None]
  - NIGHTMARE [None]
  - ECZEMA [None]
  - SPEECH DISORDER [None]
  - OEDEMA PERIPHERAL [None]
  - INSOMNIA [None]
  - AMBLYOPIA [None]
  - DYSPNOEA [None]
  - PULMONARY OEDEMA [None]
  - DEMENTIA [None]
  - DIZZINESS [None]
  - HALLUCINATION [None]
  - MOVEMENT DISORDER [None]
  - SYNCOPE [None]
  - RESTLESSNESS [None]
  - RENAL DISORDER [None]
  - REGURGITATION [None]
  - CONSTIPATION [None]
